FAERS Safety Report 18484031 (Version 1)
Quarter: 2020Q4

REPORT INFORMATION
  Report Type: Report from Study
  Country: TH (occurrence: TH)
  Receive Date: 20201109
  Receipt Date: 20201109
  Transmission Date: 20210114
  Serious: Yes (Hospitalization)
  Sender: FDA-Public Use
  Company Number: TH-ROCHE-1484739

PATIENT
  Age: 51 Year
  Sex: Male
  Weight: 42.4 kg

DRUGS (18)
  1. METOCLOPRAMIDE. [Concomitant]
     Active Substance: METOCLOPRAMIDE
     Dosage: INDICATION AS ANTIEMETIC
     Route: 048
     Dates: start: 20140923, end: 20141015
  2. ONDANSETRON [Concomitant]
     Active Substance: ONDANSETRON
     Route: 042
     Dates: start: 20141015, end: 20141015
  3. SODIUM CHLORIDE. [Concomitant]
     Active Substance: SODIUM CHLORIDE
     Route: 042
     Dates: start: 20141002, end: 20141002
  4. SODIUM BICARBONATE. [Concomitant]
     Active Substance: SODIUM BICARBONATE
     Indication: HYPONATRAEMIA
     Route: 048
     Dates: start: 20141108
  5. TRASTUZUMAB. [Suspect]
     Active Substance: TRASTUZUMAB
     Dosage: MAINTAINANCE DOSE, MOST RECENT DOSE RECEIVED ON 15/OCT/2014
     Route: 042
  6. DEXAMETHASONE. [Concomitant]
     Active Substance: DEXAMETHASONE
     Route: 048
     Dates: start: 20141015, end: 20141018
  7. CHLORPHENIRAMINE. [Concomitant]
     Active Substance: CHLORPHENIRAMINE
     Dosage: INDICATION AS  ANTIHISTAMINE
     Route: 042
     Dates: start: 20141015, end: 20141015
  8. CAPECITABINE. [Suspect]
     Active Substance: CAPECITABINE
     Indication: HER2 POSITIVE GASTRIC CANCER
     Dosage: LAST DOSE PRIOR TO EVENT: 28/OCT/2014
     Route: 048
     Dates: start: 20140923, end: 20141028
  9. ONDANSETRON [Concomitant]
     Active Substance: ONDANSETRON
     Dosage: INDICATION-ANTIEMETIC
     Route: 048
     Dates: start: 20141015, end: 20141022
  10. SODIUM CHLORIDE. [Concomitant]
     Active Substance: SODIUM CHLORIDE
     Dosage: INDICATION: HYDRATION
     Route: 042
     Dates: start: 20141015, end: 20141015
  11. PLACEBO [Suspect]
     Active Substance: UNSPECIFIED INGREDIENT
     Indication: HER2 POSITIVE GASTRIC CANCER
     Dosage: MOST RECENT DOSE RECEIVED ON 15/OCT/2014
     Route: 042
     Dates: start: 20140923
  12. CISPLATIN. [Suspect]
     Active Substance: CISPLATIN
     Indication: HER2 POSITIVE GASTRIC CANCER
     Dosage: DOSE REDUCED, MOST RECENT DOSE RECEIVED ON 15/OCT/2014
     Route: 042
     Dates: start: 20140923
  13. ONDANSETRON [Concomitant]
     Active Substance: ONDANSETRON
     Dosage: INDICATION-ANTIEMETIC
     Route: 048
     Dates: start: 20140923, end: 20140930
  14. DOMPERIDONE MALEATE [Concomitant]
     Active Substance: DOMPERIDONE MALEATE
     Dosage: INDICATION AS ANTIEMETIC
     Route: 048
     Dates: start: 20141031
  15. TRASTUZUMAB. [Suspect]
     Active Substance: TRASTUZUMAB
     Indication: HER2 POSITIVE GASTRIC CANCER
     Dosage: LOADING DOSE
     Route: 042
     Dates: start: 20140923
  16. DEXAMETHASONE. [Concomitant]
     Active Substance: DEXAMETHASONE
     Dosage: INDICATION AS ANTIEMETIC
     Route: 042
     Dates: start: 20141015, end: 20141015
  17. LORAZEPAM. [Concomitant]
     Active Substance: LORAZEPAM
     Indication: INSOMNIA
     Route: 048
     Dates: start: 20141015, end: 20141015
  18. SODIUM CHLORIDE. [Concomitant]
     Active Substance: SODIUM CHLORIDE
     Route: 042
     Dates: start: 20141022, end: 20141022

REACTIONS (2)
  - Enterocolitis [Recovered/Resolved]
  - Febrile neutropenia [Recovered/Resolved]

NARRATIVE: CASE EVENT DATE: 20141028
